FAERS Safety Report 18592633 (Version 1)
Quarter: 2020Q4

REPORT INFORMATION
  Report Type: Report from Study
  Country: US (occurrence: US)
  Receive Date: 20201208
  Receipt Date: 20201208
  Transmission Date: 20210114
  Serious: Yes (Hospitalization)
  Sender: FDA-Public Use
  Company Number: US-BAYER-2020-223304

PATIENT
  Age: 79 Year
  Sex: Male

DRUGS (2)
  1. XOFIGO [Suspect]
     Active Substance: RADIUM RA-223 DICHLORIDE
     Indication: HORMONE-REFRACTORY PROSTATE CANCER
     Dosage: 96.70 ?CI
     Route: 042
     Dates: start: 20200924, end: 20200924
  2. XOFIGO [Suspect]
     Active Substance: RADIUM RA-223 DICHLORIDE
     Indication: HORMONE-REFRACTORY PROSTATE CANCER
     Dosage: 92.00 ?CI, Q4WK
     Route: 042
     Dates: start: 20200730, end: 20200730

REACTIONS (3)
  - Blood test abnormal [Unknown]
  - Hospitalisation [None]
  - Malaise [Unknown]

NARRATIVE: CASE EVENT DATE: 20201015
